FAERS Safety Report 7592044-6 (Version None)
Quarter: 2011Q2

REPORT INFORMATION
  Report Type: 
  Country: None (occurrence: None)
  Receive Date: 20110628
  Receipt Date: 20110622
  Transmission Date: 20111010
  Serious: Yes (Hospitalization)
  Sender: FDA-Public Use
  Company Number: 2010SP059781

PATIENT
  Age: 61 Year
  Sex: Male

DRUGS (3)
  1. RIBAVIRIN [Suspect]
     Indication: HEPATITIS C
     Dates: start: 20100101
  2. INTERFERON ALFA [Suspect]
     Indication: HEPATITIS C
     Dates: start: 20100101
  3. COPEGUS [Suspect]
     Indication: HEPATITIS C

REACTIONS (2)
  - WEIGHT DECREASED [None]
  - TYPE 1 DIABETES MELLITUS [None]
